FAERS Safety Report 8818025 (Version 4)
Quarter: 2012Q4

REPORT INFORMATION
  Report Type: 
  Country: FR (occurrence: FR)
  Receive Date: 20121001
  Receipt Date: 20121226
  Transmission Date: 20130627
  Serious: Yes (Death, Other)
  Sender: FDA-Public Use
  Company Number: FR-PFIZER INC-2012236222

PATIENT
  Age: 83 Year
  Sex: Male
  Weight: 75 kg

DRUGS (4)
  1. TORISEL [Suspect]
     Indication: RENAL CANCER
     Dosage: UNK
     Route: 042
     Dates: start: 201205, end: 201209
  2. TORISEL [Interacting]
     Indication: LUNG METASTASES
  3. TORISEL [Interacting]
     Indication: BRAIN METASTASES
  4. TRIATEC [Interacting]
     Indication: HYPERTENSION ARTERIAL
     Dosage: 5 mg, 1x/day
     Route: 048
     Dates: end: 201209

REACTIONS (7)
  - Cardiac failure [Fatal]
  - Angioedema [Not Recovered/Not Resolved]
  - Cardiac failure [Not Recovered/Not Resolved]
  - Drug interaction [Unknown]
  - Peripheral arterial occlusive disease [Unknown]
  - Pleural effusion [Unknown]
  - Weight increased [Unknown]
